FAERS Safety Report 9109706 (Version 1)
Quarter: 2013Q1

REPORT INFORMATION
  Report Type: Spontaneous
  Country: FR (occurrence: FR)
  Receive Date: 20130222
  Receipt Date: 20130222
  Transmission Date: 20140127
  Serious: Yes (Hospitalization, Other)
  Sender: FDA-Public Use
  Company Number: FR-PFIZER INC-2013061326

PATIENT
  Age: 37 Year
  Sex: Female
  Weight: 60 kg

DRUGS (2)
  1. MINIDRIL [Suspect]
     Dosage: UNK
     Dates: start: 200001
  2. XARELTO [Concomitant]
     Dosage: UNK

REACTIONS (5)
  - Pulmonary embolism [Unknown]
  - Dyspnoea [Unknown]
  - Phlebitis [Unknown]
  - Musculoskeletal chest pain [Unknown]
  - Infarction [Unknown]
